FAERS Safety Report 20710617 (Version 3)
Quarter: 2022Q3

REPORT INFORMATION
  Report Type: Report from Study
  Country: FR (occurrence: FR)
  Receive Date: 20220414
  Receipt Date: 20220726
  Transmission Date: 20221027
  Serious: Yes (Other)
  Sender: FDA-Public Use
  Company Number: FR-CELGENE-FRA-20200408841

PATIENT
  Age: 66 Year
  Sex: Male
  Weight: 110 kg

DRUGS (18)
  1. ISTODAX [Suspect]
     Active Substance: ROMIDEPSIN
     Indication: Cutaneous T-cell lymphoma
     Dosage: 3 IN 28 DAYS
     Route: 042
     Dates: start: 20200120
  2. ISTODAX [Suspect]
     Active Substance: ROMIDEPSIN
     Indication: Haematotoxicity
     Route: 042
     Dates: start: 20200217
  3. ISTODAX [Suspect]
     Active Substance: ROMIDEPSIN
     Route: 042
     Dates: start: 20200312
  4. ISTODAX [Suspect]
     Active Substance: ROMIDEPSIN
     Route: 042
     Dates: start: 20200320
  5. ISTODAX [Suspect]
     Active Substance: ROMIDEPSIN
     Route: 042
     Dates: start: 20200403
  6. ISTODAX [Suspect]
     Active Substance: ROMIDEPSIN
     Route: 042
     Dates: start: 20200417
  7. ISTODAX [Suspect]
     Active Substance: ROMIDEPSIN
     Dosage: 3 IN 28 DAYS
     Route: 042
     Dates: start: 20200430
  8. ISTODAX [Suspect]
     Active Substance: ROMIDEPSIN
     Dosage: 3 IN 28 DAYS
     Route: 042
     Dates: start: 20200930
  9. ISTODAX [Suspect]
     Active Substance: ROMIDEPSIN
     Dosage: 3 IN 28 DAYS
     Route: 042
     Dates: start: 20201028
  10. ISTODAX [Suspect]
     Active Substance: ROMIDEPSIN
     Route: 042
     Dates: start: 20201112
  11. ISTODAX [Suspect]
     Active Substance: ROMIDEPSIN
     Route: 042
     Dates: start: 20210107
  12. ISTODAX [Suspect]
     Active Substance: ROMIDEPSIN
     Route: 042
     Dates: start: 20210121
  13. ISTODAX [Suspect]
     Active Substance: ROMIDEPSIN
     Route: 042
     Dates: start: 20210214
  14. ISTODAX [Suspect]
     Active Substance: ROMIDEPSIN
     Route: 042
     Dates: start: 20210428
  15. ISTODAX [Suspect]
     Active Substance: ROMIDEPSIN
     Route: 042
     Dates: start: 20210511
  16. ISTODAX [Suspect]
     Active Substance: ROMIDEPSIN
     Route: 042
  17. ISTODAX [Suspect]
     Active Substance: ROMIDEPSIN
     Route: 042
  18. ISTODAX [Suspect]
     Active Substance: ROMIDEPSIN
     Route: 042
     Dates: start: 20220706

REACTIONS (4)
  - Thrombocytopenia [Recovered/Resolved]
  - Hepatic failure [Unknown]
  - Haematotoxicity [Recovered/Resolved]
  - Blood magnesium abnormal [Unknown]

NARRATIVE: CASE EVENT DATE: 20200201
